FAERS Safety Report 4386270-7 (Version None)
Quarter: 2004Q2

REPORT INFORMATION
  Report Type: 
  Country: None (occurrence: None)
  Receive Date: 20040622
  Receipt Date: 20040609
  Transmission Date: 20050107
  Serious: Yes (Death)
  Sender: FDA-Public Use
  Company Number: S04-CAN-02641-01

PATIENT
  Age: 67 Year
  Sex: Male

DRUGS (8)
  1. CELEXA (CITALOPRAM HYDROBROMIDE) [Suspect]
     Indication: AGITATION
     Dosage: 20 MG QD PO
     Route: 048
     Dates: start: 20030603, end: 20030610
  2. PROZAC [Suspect]
     Indication: AGITATION
     Dosage: 20 MG QD PO
     Route: 048
     Dates: start: 20030523, end: 20030630
  3. NADOLOL [Concomitant]
  4. AMLODIPINE [Concomitant]
  5. HYTRIN [Concomitant]
  6. ZOCOR (SIMVASTATIN (SIMVASTATIN) [Concomitant]
  7. ALLOPURINOL [Concomitant]
  8. IMOVANE (ZOPICLONE) [Concomitant]

REACTIONS (9)
  - AGITATION [None]
  - ANXIETY [None]
  - COMPLETED SUICIDE [None]
  - CONDITION AGGRAVATED [None]
  - DEMENTIA ALZHEIMER'S TYPE [None]
  - HEART RATE INCREASED [None]
  - HYPERTENSION [None]
  - IMPULSIVE BEHAVIOUR [None]
  - INTENTIONAL SELF-INJURY [None]
